FAERS Safety Report 19609328 (Version 1)
Quarter: 2021Q3

REPORT INFORMATION
  Report Type: Spontaneous
  Country: US (occurrence: US)
  Receive Date: 20210726
  Receipt Date: 20210726
  Transmission Date: 20211014
  Serious: Yes (Hospitalization)
  Sender: FDA-Public Use
  Company Number: None

PATIENT
  Age: 62 Year
  Sex: Female

DRUGS (3)
  1. MELATONIN, METOPROLOL TARTRATE, ATORVASTATIN, ALLOPURINOL, FUROSEMIDE [Concomitant]
  2. SILDENAFIL. [Suspect]
     Active Substance: SILDENAFIL
     Indication: PULMONARY ARTERIAL HYPERTENSION
     Route: 048
     Dates: start: 20210205
  3. COLCHICINE, ELIQUIS, CALCITROL, GABAPENTIN, CEPHALEXIN, SEVELAMAR [Concomitant]

REACTIONS (2)
  - Dialysis [None]
  - Cellulitis [None]

NARRATIVE: CASE EVENT DATE: 20210706
